FAERS Safety Report 9167935 (Version 3)
Quarter: 2013Q2

REPORT INFORMATION
  Report Type: Spontaneous
  Country: GB (occurrence: None)
  Receive Date: 20130313
  Receipt Date: 20130402
  Transmission Date: 20140414
  Serious: Yes (Death, Other)
  Sender: FDA-Public Use
  Company Number: AUR-APL-2013-02091

PATIENT
  Age: 52 Year
  Sex: Male
  Weight: 79.37 kg

DRUGS (6)
  1. FLUOXETINE [Suspect]
     Indication: ANXIETY
  2. MIRTAZAPINE (MIRTAZAPINE) [Suspect]
     Indication: ANXIETY
     Route: 048
     Dates: end: 20120607
  3. SIMVASTATIN [Suspect]
     Indication: BLOOD CHOLESTEROL INCREASED
     Dosage: 40 MG (40 MG, 1 IN 1 D), ORAL
     Route: 048
     Dates: end: 20120607
  4. CO-TENIDONE (TENORETIC) [Concomitant]
  5. LOSARTAN (LOSARTAN) [Concomitant]
  6. LOSEC (OMEPRAZOLE) [Concomitant]

REACTIONS (9)
  - Myalgia [None]
  - Anxiety [None]
  - Depression [None]
  - Pain in jaw [None]
  - Neck pain [None]
  - Completed suicide [None]
  - Blood creatine phosphokinase increased [None]
  - Inflammation [None]
  - Paraesthesia [None]
